FAERS Safety Report 24216657 (Version 1)
Quarter: 2024Q3

REPORT INFORMATION
  Report Type: Spontaneous
  Country: US (occurrence: None)
  Receive Date: 20240815
  Receipt Date: 20240815
  Transmission Date: 20241017
  Serious: Yes (Life-Threatening)
  Sender: Public
  Company Number: None

PATIENT
  Age: 91 Year
  Sex: Male

DRUGS (3)
  1. ABIRATERONE [Suspect]
     Active Substance: ABIRATERONE
     Indication: Prostate cancer
     Dosage: 250 MG QD
  2. PROLIA [Suspect]
     Active Substance: DENOSUMAB
  3. XTANDI [Suspect]
     Active Substance: ENZALUTAMIDE

REACTIONS (1)
  - Pulmonary thrombosis [None]
